FAERS Safety Report 9379066 (Version 1)
Quarter: 2013Q3

REPORT INFORMATION
  Report Type: Spontaneous
  Country: US (occurrence: US)
  Receive Date: 20130702
  Receipt Date: 20130702
  Transmission Date: 20140515
  Serious: Yes (Hospitalization, Other)
  Sender: FDA-Public Use
  Company Number: PHEH2013US013868

PATIENT
  Sex: Male

DRUGS (2)
  1. DIOVAN [Suspect]
     Dosage: UNK UKN, UNK
  2. DIOVAN HCT [Suspect]
     Dosage: UNK UKN, UNK
     Dates: end: 201304

REACTIONS (4)
  - Renal failure [Recovering/Resolving]
  - Cardiac failure congestive [Unknown]
  - Fluid retention [Unknown]
  - Chest pain [Unknown]
